FAERS Safety Report 7935427-4 (Version None)
Quarter: 2011Q4

REPORT INFORMATION
  Report Type: 
  Country: None (occurrence: None)
  Receive Date: 20111122
  Receipt Date: 20111117
  Transmission Date: 20120403
  Serious: Yes (Other)
  Sender: FDA-Public Use
  Company Number: DE-JNJFOC-20111108547

PATIENT
  Sex: Female

DRUGS (2)
  1. XARELTO [Suspect]
     Indication: ORTHOPEDIC PROCEDURE
     Route: 065
  2. ENOXAPARIN SODIUM [Concomitant]

REACTIONS (1)
  - THROMBOSIS [None]
